FAERS Safety Report 20958543 (Version 1)
Quarter: 2022Q2

REPORT INFORMATION
  Report Type: Spontaneous
  Country: TW (occurrence: TW)
  Receive Date: 20220614
  Receipt Date: 20220614
  Transmission Date: 20220721
  Serious: Yes (Death, Other)
  Sender: FDA-Public Use
  Company Number: TW-PADAGIS-2022PAD00151

PATIENT

DRUGS (4)
  1. DOXORUBICIN [Suspect]
     Active Substance: DOXORUBICIN
     Indication: Anaplastic thyroid cancer
     Dosage: 60 MG/M2 EVERY 3 WEEKS FOR FOUR CYCLES
     Route: 042
  2. PEMBROLIZUMAB [Suspect]
     Active Substance: PEMBROLIZUMAB
     Indication: Anaplastic thyroid cancer
     Dosage: 200 MG, EVERY 3 WEEKS FOR FOUR CYCLES
     Route: 042
  3. LENVATINIB [Suspect]
     Active Substance: LENVATINIB
     Indication: Anaplastic thyroid cancer
     Dosage: 20 MG, QD ALTERNATIVELY
     Route: 048
  4. LENVATINIB [Suspect]
     Active Substance: LENVATINIB
     Dosage: 10 MG, QD ALTERNATIVELY
     Route: 048

REACTIONS (6)
  - Pneumonia aspiration [Fatal]
  - Septic shock [Fatal]
  - Neutropenia [Unknown]
  - Genital herpes simplex [Unknown]
  - Nausea [Unknown]
  - Vomiting [Unknown]
